FAERS Safety Report 24448450 (Version 3)
Quarter: 2025Q1

REPORT INFORMATION
  Report Type: Spontaneous
  Country: JP (occurrence: JP)
  Receive Date: 20241017
  Receipt Date: 20250204
  Transmission Date: 20250409
  Serious: Yes (Other)
  Sender: AMGEN
  Company Number: JP-Vifor (International) Inc.-VIT-2024-09449

PATIENT
  Age: 81 Year
  Sex: Female

DRUGS (3)
  1. TAVNEOS [Suspect]
     Active Substance: AVACOPAN
     Indication: Microscopic polyangiitis
     Route: 048
  2. TAVNEOS [Suspect]
     Active Substance: AVACOPAN
     Route: 048
  3. PREDNISOLONE [Concomitant]
     Active Substance: PREDNISOLONE
     Indication: Microscopic polyangiitis
     Dosage: 25 MILLIGRAM, QD

REACTIONS (3)
  - Cerebral infarction [Unknown]
  - Cholestasis [Recovering/Resolving]
  - Underdose [Unknown]
